FAERS Safety Report 19475000 (Version 1)
Quarter: 2021Q2

REPORT INFORMATION
  Report Type: Spontaneous
  Country: US (occurrence: US)
  Receive Date: 20210630
  Receipt Date: 20210630
  Transmission Date: 20210717
  Serious: No
  Sender: FDA-Public Use
  Company Number: US-PRINSTON PHARMACEUTICAL INC.-2020PRN00252

PATIENT
  Sex: Female
  Weight: 81.63 kg

DRUGS (3)
  1. DULOXETINE. [Suspect]
     Active Substance: DULOXETINE
     Dosage: 60 MG, 1X/DAY
     Route: 048
     Dates: start: 2019, end: 2019
  2. LAMOTRIGINE. [Concomitant]
     Active Substance: LAMOTRIGINE
  3. DULOXETINE. [Suspect]
     Active Substance: DULOXETINE
     Dosage: 60 MG, 1X/DAY
     Route: 048
     Dates: start: 2019, end: 2019

REACTIONS (6)
  - Reaction to excipient [Recovered/Resolved]
  - Erythema [Recovered/Resolved]
  - Hypersensitivity [Recovered/Resolved]
  - Urticaria [Recovered/Resolved]
  - Rash [Recovered/Resolved]
  - Pruritus [Recovered/Resolved]

NARRATIVE: CASE EVENT DATE: 2019
